FAERS Safety Report 7864265-6 (Version None)
Quarter: 2011Q4

REPORT INFORMATION
  Report Type: 
  Country: None (occurrence: None)
  Receive Date: 20111028
  Receipt Date: 20111021
  Transmission Date: 20120403
  Serious: Yes (Other)
  Sender: FDA-Public Use
  Company Number: FR-JNJFOC-20111010486

PATIENT
  Age: 26 Year

DRUGS (1)
  1. DITROPAN [Suspect]
     Indication: HYPERHIDROSIS
     Route: 065

REACTIONS (1)
  - SYNCOPE [None]
